FAERS Safety Report 8096434-7 (Version None)
Quarter: 2012Q1

REPORT INFORMATION
  Report Type: 
  Country: None (occurrence: None)
  Receive Date: 20120129
  Receipt Date: 20111214
  Transmission Date: 20120608
  Serious: No
  Sender: FDA-Public Use
  Company Number: US-ABBOTT-11P-163-0882955-00

PATIENT
  Sex: Female
  Weight: 69.916 kg

DRUGS (2)
  1. UNKNOWN OTHER DRUGS [Concomitant]
     Indication: PRODUCT USED FOR UNKNOWN INDICATION
  2. HUMIRA [Suspect]
     Indication: RHEUMATOID ARTHRITIS
     Route: 058
     Dates: start: 20071017, end: 20080829

REACTIONS (1)
  - DRUG EFFECT DECREASED [None]
